FAERS Safety Report 10257757 (Version 1)
Quarter: 2014Q2

REPORT INFORMATION
  Report Type: Spontaneous
  Country: US (occurrence: None)
  Receive Date: 20140623
  Receipt Date: 20140623
  Transmission Date: 20141212
  Serious: No
  Sender: FDA-Public Use
  Company Number: None

PATIENT
  Age: 34 Year
  Sex: Female
  Weight: 52.16 kg

DRUGS (1)
  1. AUGMENTIN [Suspect]
     Indication: EAR INFECTION
     Route: 048
     Dates: start: 20140615, end: 20140619

REACTIONS (5)
  - Diarrhoea [None]
  - Abdominal pain upper [None]
  - Nausea [None]
  - Dizziness [None]
  - Insomnia [None]
